FAERS Safety Report 8363263-6 (Version None)
Quarter: 2012Q2

REPORT INFORMATION
  Report Type: 
  Country: None (occurrence: None)
  Receive Date: 20120514
  Receipt Date: 20120427
  Transmission Date: 20120825
  Serious: Yes (Hospitalization)
  Sender: FDA-Public Use
  Company Number: 2012-1648

PATIENT
  Age: 78 Year
  Sex: Male

DRUGS (2)
  1. CARBOPLATIN + GEMZAR (CARBOPLATIN W/GEMCITABINE HYDROCHLORIDE) [Concomitant]
  2. IPSTYL 90MG (LANREOTIDE AUTOGEL) (LANREOTIDE) (LANREOTIDE ACETATE) [Suspect]
     Indication: NEUROENDOCRINE CARCINOMA
     Dosage: 90 MG (90 MH, 1 IN 1 M), UNKNOEN
     Dates: start: 20100413, end: 20111220

REACTIONS (13)
  - BLOOD CALCIUM INCREASED [None]
  - DYSPNOEA [None]
  - ASPARTATE AMINOTRANSFERASE INCREASED [None]
  - MYOGLOBIN BLOOD DECREASED [None]
  - PLATELET COUNT DECREASED [None]
  - PANCREATITIS [None]
  - HYPOTENSION [None]
  - BLOOD POTASSIUM INCREASED [None]
  - RED BLOOD CELL COUNT DECREASED [None]
  - HAEMOGLOBIN DECREASED [None]
  - WHITE BLOOD CELL COUNT INCREASED [None]
  - ALANINE AMINOTRANSFERASE INCREASED [None]
  - BLOOD BILIRUBIN INCREASED [None]
